FAERS Safety Report 8950279 (Version 1)
Quarter: 2012Q4

REPORT INFORMATION
  Report Type: 
  Country: US (occurrence: US)
  Receive Date: 20121205
  Receipt Date: 20121205
  Transmission Date: 20130627
  Serious: Yes (Other)
  Sender: FDA-Public Use
  Company Number: US-VERTEX PHARMACEUTICALS INC.-2012-025367

PATIENT
  Sex: Male

DRUGS (3)
  1. INCIVEK [Suspect]
     Indication: HEPATITIS C
  2. PEGASYS [Suspect]
     Indication: HEPATITIS C
  3. RIBASPHERE [Suspect]
     Indication: HEPATITIS C

REACTIONS (15)
  - Asthenia [Unknown]
  - Rash generalised [Unknown]
  - Pruritus [Unknown]
  - Skin exfoliation [Unknown]
  - Anaemia [Unknown]
  - Scab [Unknown]
  - Alopecia [Unknown]
  - White blood cell count decreased [Unknown]
  - Blood glucose increased [Unknown]
  - Blood albumin decreased [Unknown]
  - Protein total decreased [Unknown]
  - Blood calcium decreased [Unknown]
  - Carbon dioxide decreased [Unknown]
  - Fatigue [Unknown]
  - Blood potassium decreased [Unknown]
